FAERS Safety Report 10022779 (Version 1)
Quarter: 2014Q1

REPORT INFORMATION
  Report Type: Spontaneous
  Country: US (occurrence: US)
  Receive Date: 20140319
  Receipt Date: 20140319
  Transmission Date: 20141002
  Serious: Yes (Other)
  Sender: FDA-Public Use
  Company Number: US-PFIZER INC-2014077778

PATIENT
  Age: 56 Year
  Sex: 0

DRUGS (1)
  1. LYRICA [Suspect]
     Dosage: 150 MG, 2X/DAY
     Route: 048
     Dates: start: 20140203, end: 20140305

REACTIONS (4)
  - Head and neck cancer [Unknown]
  - Pulmonary mass [Unknown]
  - Neuropathy peripheral [Unknown]
  - Pain [Unknown]
